FAERS Safety Report 11938633 (Version 1)
Quarter: 2016Q1

REPORT INFORMATION
  Report Type: Report from Study
  Country: ES (occurrence: ES)
  Receive Date: 20160122
  Receipt Date: 20160122
  Transmission Date: 20160526
  Serious: Yes (Other)
  Sender: FDA-Public Use
  Company Number: ES-B.I. PHARMACEUTICALS,INC./RIDGEFIELD-2016-BI-02461BI

PATIENT
  Age: 52 Year
  Sex: Female

DRUGS (2)
  1. GILOTRIF [Suspect]
     Active Substance: AFATINIB
     Dosage: 30 MG
     Route: 065
  2. GILOTRIF [Suspect]
     Active Substance: AFATINIB
     Indication: NON-SMALL CELL LUNG CANCER STAGE IV
     Dosage: 40 MG
     Route: 065
     Dates: start: 201203

REACTIONS (10)
  - Diarrhoea [Recovered/Resolved]
  - Skin fissures [Recovered/Resolved]
  - Ocular discomfort [Recovered/Resolved]
  - Blepharitis [Not Recovered/Not Resolved]
  - Malignant neoplasm progression [Unknown]
  - Skin lesion [Unknown]
  - Chronic kidney disease [Unknown]
  - Dermatitis acneiform [Not Recovered/Not Resolved]
  - Xerosis [Recovered/Resolved]
  - Dry eye [Recovered/Resolved]

NARRATIVE: CASE EVENT DATE: 201401
